FAERS Safety Report 23405292 (Version 1)
Quarter: 2024Q1

REPORT INFORMATION
  Report Type: Spontaneous
  Country: ES (occurrence: None)
  Receive Date: 20240116
  Receipt Date: 20240116
  Transmission Date: 20240410
  Serious: Yes (Other)
  Sender: FDA-Public Use
  Company Number: 2024A004711

PATIENT
  Age: 74 Year
  Sex: Male

DRUGS (2)
  1. XIGDUO XR [Interacting]
     Active Substance: DAPAGLIFLOZIN PROPANEDIOL\METFORMIN HYDROCHLORIDE
     Indication: Diabetes mellitus
     Route: 048
     Dates: start: 2023, end: 20231114
  2. DAPAGLIFLOZIN [Interacting]
     Active Substance: DAPAGLIFLOZIN
     Indication: Diabetes mellitus
     Route: 048
     Dates: start: 202311, end: 20231114

REACTIONS (2)
  - Balanoposthitis [Unknown]
  - Duplicate therapy error [Recovered/Resolved]

NARRATIVE: CASE EVENT DATE: 20231101
